FAERS Safety Report 7967202-9 (Version None)
Quarter: 2011Q4

REPORT INFORMATION
  Report Type: 
  Country: None (occurrence: None)
  Receive Date: 20111209
  Receipt Date: 20111206
  Transmission Date: 20120403
  Serious: Yes (Other)
  Sender: FDA-Public Use
  Company Number: US-AMGEN-USASP2011038331

PATIENT
  Age: 18 Year
  Sex: Female
  Weight: 46.3 kg

DRUGS (6)
  1. NPLATE [Suspect]
     Indication: IDIOPATHIC THROMBOCYTOPENIC PURPURA
     Dosage: 2 MUG/KG, QWK
     Route: 058
     Dates: start: 20100702, end: 20110105
  2. ORTHO-NOVUM                        /00013701/ [Concomitant]
     Indication: MENORRHAGIA
     Dosage: UNK UNK, QD
     Route: 048
     Dates: start: 20100616, end: 20110106
  3. AMICAR [Concomitant]
     Indication: HAEMORRHAGE
     Dosage: 1000 UNK, PRN
     Route: 048
     Dates: start: 20100714
  4. CORTICOSTEROIDS [Concomitant]
  5. MELATONIN [Concomitant]
     Indication: SLEEP DISORDER
     Dosage: 2.5 UNK, QD
     Route: 048
     Dates: start: 20101230, end: 20110313
  6. PENICILLIN [Concomitant]
     Dosage: 250 UNK, BID
     Dates: start: 20100826

REACTIONS (8)
  - HAEMOLYTIC ANAEMIA [None]
  - PLATELET COUNT DECREASED [None]
  - AUTOIMMUNE HEPATITIS [None]
  - THROMBOCYTOPENIA [None]
  - PETECHIAE [None]
  - CONTUSION [None]
  - HEPATIC ENZYME INCREASED [None]
  - VIRAL INFECTION [None]
